FAERS Safety Report 18686677 (Version 3)
Quarter: 2021Q1

REPORT INFORMATION
  Report Type: Spontaneous
  Country: US (occurrence: US)
  Receive Date: 20201230
  Receipt Date: 20210204
  Transmission Date: 20210419
  Serious: No
  Sender: FDA-Public Use
  Company Number: US-009507513-2012USA010290

PATIENT
  Sex: Female
  Weight: 127.44 kg

DRUGS (1)
  1. NEXPLANON [Suspect]
     Active Substance: ETONOGESTREL
     Indication: CONTRACEPTION
     Dosage: 1 ROD,LEFT ARM
     Route: 059
     Dates: start: 20190801, end: 20201221

REACTIONS (2)
  - Device breakage [Recovered/Resolved]
  - No adverse event [Unknown]
